FAERS Safety Report 4382065-9 (Version None)
Quarter: 2004Q2

REPORT INFORMATION
  Report Type: 
  Country: None (occurrence: None)
  Receive Date: 20040621
  Receipt Date: 20040615
  Transmission Date: 20050107
  Serious: Yes (Other)
  Sender: FDA-Public Use
  Company Number: CA-MERCK-0406CAN00079

PATIENT
  Age: 62 Year
  Sex: Male

DRUGS (3)
  1. CLONAZEPAM [Concomitant]
     Route: 065
  2. INDAPAMIDE [Concomitant]
     Route: 065
  3. COZAAR [Suspect]
     Route: 048
     Dates: start: 20040301

REACTIONS (2)
  - DEAFNESS [None]
  - TINNITUS [None]
